FAERS Safety Report 5251535-3 (Version None)
Quarter: 2007Q1

REPORT INFORMATION
  Report Type: 
  Country: None (occurrence: None)
  Receive Date: 20061201
  Receipt Date: 20060731
  Transmission Date: 20070707
  Serious: No
  Sender: FDA-Public Use
  Company Number: 2006PV018558

PATIENT
  Age: 64 Year
  Sex: Male
  Weight: 113.8529 kg

DRUGS (4)
  1. BYETTA [Suspect]
     Indication: DIABETES MELLITUS NON-INSULIN-DEPENDENT
     Dosage: 5 MCG BID SC
     Route: 058
     Dates: start: 20060729
  2. AMARYL [Concomitant]
  3. ALLOPURINOL [Concomitant]
  4. SYNTHROID [Concomitant]

REACTIONS (3)
  - INJECTION SITE IRRITATION [None]
  - NAUSEA [None]
  - SLUGGISHNESS [None]
